FAERS Safety Report 9702210 (Version 3)
Quarter: 2014Q2

REPORT INFORMATION
  Report Type: Spontaneous
  Country: US (occurrence: US)
  Receive Date: 20131121
  Receipt Date: 20140612
  Transmission Date: 20141212
  Serious: Yes (Other)
  Sender: FDA-Public Use
  Company Number: US-BAYER-2013-142395

PATIENT
  Age: 37 Year
  Sex: Female
  Weight: 70.75 kg

DRUGS (1)
  1. MIRENA [Suspect]
     Indication: CONTRACEPTION
     Dosage: 20 MCG/24HR, CONT
     Route: 015
     Dates: start: 20130726, end: 20131108

REACTIONS (3)
  - Device dislocation [None]
  - Off label use [None]
  - Device expulsion [None]
